FAERS Safety Report 7936317-3 (Version None)
Quarter: 2011Q4

REPORT INFORMATION
  Report Type: 
  Country: None (occurrence: None)
  Receive Date: 20111123
  Receipt Date: 20111118
  Transmission Date: 20120403
  Serious: Yes (Hospitalization)
  Sender: FDA-Public Use
  Company Number: DE-AMGEN-DEUSP2011060952

PATIENT
  Age: 29 Year

DRUGS (5)
  1. CYCLOPHOSPHAMIDE [Suspect]
     Indication: HODGKIN'S DISEASE
     Dosage: 1250 MG/M2, UNK
     Dates: start: 20100531
  2. ADRIAMYCIN PFS [Suspect]
     Indication: HODGKIN'S DISEASE
     Dosage: 35 MG/M2, UNK
     Dates: start: 20100531
  3. NEULASTA [Suspect]
     Indication: CHEMOTHERAPY
     Dosage: 6 MG, UNK
     Dates: start: 20100211
  4. ETOPOSIDE [Suspect]
     Indication: HODGKIN'S DISEASE
     Dosage: 200 MG/M2, UNK
     Dates: start: 20100531
  5. PREDNISONE TAB [Suspect]
     Indication: HODGKIN'S DISEASE
     Dosage: 40 MG/M2, UNK
     Dates: start: 20100531

REACTIONS (1)
  - BACK PAIN [None]
